FAERS Safety Report 15430584 (Version 1)
Quarter: 2018Q3

REPORT INFORMATION
  Report Type: Spontaneous
  Country: US (occurrence: US)
  Receive Date: 20180926
  Receipt Date: 20180926
  Transmission Date: 20181010
  Serious: Yes (Death, Other)
  Sender: FDA-Public Use
  Company Number: US-PFIZER INC-2018383349

PATIENT
  Age: 71 Year
  Sex: Male
  Weight: 77.11 kg

DRUGS (15)
  1. NORTRIPTYLINE [Concomitant]
     Active Substance: NORTRIPTYLINE
     Dosage: UNK
  2. OMEPRAZOLE. [Concomitant]
     Active Substance: OMEPRAZOLE
     Indication: GASTROOESOPHAGEAL REFLUX DISEASE
     Dosage: UNK
  3. CENTRUM SILVER MEN 50+ [Concomitant]
     Dosage: UNK
  4. LYRICA [Suspect]
     Active Substance: PREGABALIN
     Indication: NEUROPATHY PERIPHERAL
     Dosage: 150 MG, 3X/DAY
     Dates: start: 201711, end: 201805
  5. GLIPIZIDE. [Concomitant]
     Active Substance: GLIPIZIDE
     Dosage: UNK
  6. TAMSULOSIN [Concomitant]
     Active Substance: TAMSULOSIN
     Indication: PROSTATIC DISORDER
     Dosage: UNK
  7. LEVOTHYROXINE. [Concomitant]
     Active Substance: LEVOTHYROXINE
     Indication: THYROID DISORDER
     Dosage: UNK
  8. MELOXICAM. [Concomitant]
     Active Substance: MELOXICAM
     Dosage: UNK
  9. QUETIAPINE. [Concomitant]
     Active Substance: QUETIAPINE
     Indication: SLEEP DISORDER
     Dosage: UNK
  10. CREON [Concomitant]
     Active Substance: PANCRELIPASE AMYLASE\PANCRELIPASE LIPASE\PANCRELIPASE PROTEASE
     Dosage: UNK
  11. NORCO [Concomitant]
     Active Substance: ACETAMINOPHEN\HYDROCODONE BITARTRATE
     Indication: HEADACHE
     Dosage: UNK
  12. LORAZEPAM. [Concomitant]
     Active Substance: LORAZEPAM
     Indication: SLEEP DISORDER
     Dosage: UNK
  13. TYLENOL [Concomitant]
     Active Substance: ACETAMINOPHEN
     Dosage: UNK
  14. VITAMIN B12 [Concomitant]
     Active Substance: CYANOCOBALAMIN
     Dosage: UNK
  15. DRONABINOL. [Concomitant]
     Active Substance: DRONABINOL
     Dosage: UNK

REACTIONS (10)
  - Sepsis [Fatal]
  - Pneumonia [Fatal]
  - Pancytopenia [Fatal]
  - Biliary tract disorder [Unknown]
  - Pancreatic carcinoma recurrent [Fatal]
  - Pneumonia klebsiella [Fatal]
  - Decreased immune responsiveness [Unknown]
  - Weight decreased [Unknown]
  - Post procedural bile leak [Unknown]
  - Full blood count decreased [Unknown]
